FAERS Safety Report 10084554 (Version 2)
Quarter: 2014Q2

REPORT INFORMATION
  Report Type: Spontaneous
  Country: GB (occurrence: GB)
  Receive Date: 20140417
  Receipt Date: 20140620
  Transmission Date: 20141212
  Serious: Yes (Death, Life-Threatening, Hospitalization)
  Sender: FDA-Public Use
  Company Number: GB-GLAXOSMITHKLINE-B0985152A

PATIENT
  Age: 67 Year
  Sex: Male

DRUGS (6)
  1. ARZERRA [Suspect]
     Indication: CHRONIC LYMPHOCYTIC LEUKAEMIA
     Route: 042
     Dates: start: 20140304, end: 20140318
  2. PETHIDINE [Concomitant]
     Indication: NONSPECIFIC REACTION
     Dosage: 20MG SINGLE DOSE
     Route: 040
  3. PARACETAMOL [Concomitant]
     Indication: NONSPECIFIC REACTION
     Dosage: 1000MG SINGLE DOSE
     Route: 048
  4. PIRITON [Concomitant]
     Indication: NONSPECIFIC REACTION
     Dosage: 10MG SINGLE DOSE
     Route: 040
  5. ACICLOVIR [Concomitant]
     Indication: NONSPECIFIC REACTION
     Dosage: 400MG TWICE PER DAY
     Route: 048
  6. PETHIDINE [Concomitant]
     Indication: NONSPECIFIC REACTION
     Dosage: 20MG SINGLE DOSE
     Route: 042

REACTIONS (4)
  - Acute respiratory distress syndrome [Fatal]
  - Malaise [Fatal]
  - Multi-organ failure [Fatal]
  - Pyrexia [Fatal]
